FAERS Safety Report 14337103 (Version 1)
Quarter: 2017Q4

REPORT INFORMATION
  Report Type: Spontaneous
  Country: US (occurrence: US)
  Receive Date: 20171228
  Receipt Date: 20171228
  Transmission Date: 20180321
  Serious: No
  Sender: FDA-Public Use
  Company Number: None

PATIENT
  Age: 16 Year
  Sex: Female
  Weight: 67.5 kg

DRUGS (2)
  1. BIRTH CONTROL PILLS [Concomitant]
     Active Substance: UNSPECIFIED INGREDIENT
  2. TAMIFLU [Suspect]
     Active Substance: OSELTAMIVIR PHOSPHATE
     Indication: INFLUENZA

REACTIONS (2)
  - Hallucination [None]
  - Insomnia [None]

NARRATIVE: CASE EVENT DATE: 20130124
